FAERS Safety Report 22635139 (Version 1)
Quarter: 2023Q2

REPORT INFORMATION
  Report Type: Spontaneous
  Country: BE (occurrence: BE)
  Receive Date: 20230623
  Receipt Date: 20230623
  Transmission Date: 20230722
  Serious: Yes (Other)
  Sender: FDA-Public Use
  Company Number: BE-SUN PHARMACEUTICAL INDUSTRIES LTD-2023RR-395623

PATIENT
  Age: 73 Year
  Sex: Male

DRUGS (2)
  1. TRABECTEDIN [Suspect]
     Active Substance: TRABECTEDIN
     Indication: Metastatic neoplasm
     Dosage: SECOND-LINE TREATMENT
     Route: 065
     Dates: start: 200906
  2. DOXORUBICIN [Suspect]
     Active Substance: DOXORUBICIN
     Indication: Metastatic neoplasm
     Dosage: MONOTHERAPY
     Route: 065

REACTIONS (6)
  - Cardiomyopathy [Unknown]
  - Disease progression [Recovered/Resolved]
  - Therapeutic product effect incomplete [Unknown]
  - Dyspnoea [Unknown]
  - Diarrhoea [Unknown]
  - Anaemia [Unknown]
